FAERS Safety Report 8316771-8 (Version None)
Quarter: 2012Q2

REPORT INFORMATION
  Report Type: 
  Country: None (occurrence: None)
  Receive Date: 20120425
  Receipt Date: 20120412
  Transmission Date: 20120825
  Serious: Yes (Life-Threatening, Hospitalization)
  Sender: FDA-Public Use
  Company Number: 2012ST000373

PATIENT
  Age: 13 Year
  Sex: Female
  Weight: 64.8 kg

DRUGS (8)
  1. PREDNISONE [Suspect]
     Indication: B PRECURSOR TYPE ACUTE LEUKAEMIA
     Dosage: 20 MG/M2, BID, PO
     Route: 048
     Dates: start: 20120211, end: 20120218
  2. DOXORUBICIN HCL [Concomitant]
  3. DALTEPARIN SODIUM [Concomitant]
  4. VINCRISTINE [Concomitant]
  5. VELCADE [Suspect]
     Indication: B PRECURSOR TYPE ACUTE LEUKAEMIA
     Dosage: 1.3 MG/M2, X1, IV
     Route: 042
     Dates: start: 20120211, end: 20120218
  6. METHOTREXATE [Concomitant]
  7. ONCASPAR [Suspect]
     Indication: B PRECURSOR TYPE ACUTE LEUKAEMIA
     Dosage: 2500 IU/M2,X1
     Dates: start: 20120211, end: 20120302
  8. CYTARABINE [Suspect]

REACTIONS (11)
  - ASPARTATE AMINOTRANSFERASE INCREASED [None]
  - PANCREATITIS [None]
  - DEPRESSED LEVEL OF CONSCIOUSNESS [None]
  - ALANINE AMINOTRANSFERASE INCREASED [None]
  - CEREBRAL ARTERY OCCLUSION [None]
  - GAMMA-GLUTAMYLTRANSFERASE INCREASED [None]
  - NEUROLOGICAL SYMPTOM [None]
  - ACUTE LYMPHOCYTIC LEUKAEMIA RECURRENT [None]
  - MENTAL STATUS CHANGES [None]
  - HYPERTRIGLYCERIDAEMIA [None]
  - HYPOKALAEMIA [None]
